FAERS Safety Report 14284606 (Version 3)
Quarter: 2017Q4

REPORT INFORMATION
  Report Type: Spontaneous
  Country: ES (occurrence: ES)
  Receive Date: 20171214
  Receipt Date: 20171228
  Transmission Date: 20180321
  Serious: Yes (Other)
  Sender: FDA-Public Use
  Company Number: ES-009507513-1712ESP005342

PATIENT
  Age: 76 Year
  Sex: Male
  Weight: 53 kg

DRUGS (3)
  1. SINEMET PLUS 25/100 MG (IR) [Suspect]
     Active Substance: CARBIDOPA\LEVODOPA
     Indication: PARKINSON^S DISEASE
     Dosage: 1/2 TABLET IN THE MORNING, AT MIDDAY AND AT NIGHT
     Route: 048
     Dates: start: 20171111
  2. OMEPRAZOLE. [Concomitant]
     Active Substance: OMEPRAZOLE
     Indication: CHRONIC GASTRITIS
     Dosage: SPORADICALLY ON DEMAND
  3. ENALAPRIL NORMON [Concomitant]

REACTIONS (2)
  - Abdominal discomfort [Unknown]
  - Chronic gastritis [Recovering/Resolving]

NARRATIVE: CASE EVENT DATE: 20171111
